FAERS Safety Report 7456557-X (Version None)
Quarter: 2011Q2

REPORT INFORMATION
  Report Type: 
  Country: None (occurrence: None)
  Receive Date: 20110503
  Receipt Date: 20110428
  Transmission Date: 20111010
  Serious: Yes (Death)
  Sender: FDA-Public Use
  Company Number: US-PFIZER INC-2011046922

PATIENT
  Sex: Male

DRUGS (3)
  1. MIDODRINE [Concomitant]
  2. REVATIO [Suspect]
     Indication: PULMONARY HYPERTENSION
     Dosage: 20 MG (2 TABLETS) 3X DAILY
     Route: 048
     Dates: start: 20070101, end: 20110201
  3. COUMADIN [Concomitant]
     Dosage: UNK

REACTIONS (3)
  - PNEUMONIA INFLUENZAL [None]
  - SEPTIC SHOCK [None]
  - GASTROINTESTINAL HAEMORRHAGE [None]
